FAERS Safety Report 17456446 (Version 1)
Quarter: 2020Q1

REPORT INFORMATION
  Report Type: Spontaneous
  Country: US (occurrence: US)
  Receive Date: 20200225
  Receipt Date: 20200225
  Transmission Date: 20200409
  Serious: Yes (Death)
  Sender: FDA-Public Use
  Company Number: None

PATIENT
  Age: 65 Year
  Sex: Male
  Weight: 85.95 kg

DRUGS (16)
  1. POLYETHYLENE GLYCOL 3350. [Concomitant]
     Active Substance: POLYETHYLENE GLYCOL 3350
  2. OXYCODONE 5 MG [Concomitant]
     Active Substance: OXYCODONE
  3. FUROSEMIDE 20 MG [Concomitant]
     Active Substance: FUROSEMIDE
  4. COLACE [Concomitant]
     Active Substance: DOCUSATE SODIUM
  5. HYDROMET 5-1.5 MG/5ML [Concomitant]
  6. BASAGLAR 100 UNIT/ML [Concomitant]
  7. INLYTA [Suspect]
     Active Substance: AXITINIB
     Indication: RENAL CANCER
     Route: 048
     Dates: start: 20200129
  8. VITAMIN D 10 MCG [Concomitant]
  9. MAG-OXIDE 200 MG [Concomitant]
  10. SENOKOT 8.6 MG [Concomitant]
  11. TYLENOL [Concomitant]
     Active Substance: ACETAMINOPHEN
  12. INLYTA [Suspect]
     Active Substance: AXITINIB
     Indication: BONE CANCER
     Route: 048
     Dates: start: 20200129
  13. ATIVAN 0.5 MG [Concomitant]
  14. MELATONIN 1 MG [Concomitant]
  15. COLYTE WITH FLAVOR PACKS 240 GM [Concomitant]
  16. VENLAFAXINE 37.5 MG [Concomitant]
     Active Substance: VENLAFAXINE HYDROCHLORIDE

REACTIONS (1)
  - Death [None]

NARRATIVE: CASE EVENT DATE: 20200201
